FAERS Safety Report 12711540 (Version 3)
Quarter: 2016Q3

REPORT INFORMATION
  Report Type: Spontaneous
  Country: US (occurrence: US)
  Receive Date: 20160902
  Receipt Date: 20160912
  Transmission Date: 20161109
  Serious: Yes (Hospitalization, Other)
  Sender: FDA-Public Use
  Company Number: US-PFIZER INC-2016381501

PATIENT
  Age: 35 Year
  Sex: Female
  Weight: 75.74 kg

DRUGS (8)
  1. PROPRANOLOL [Concomitant]
     Active Substance: PROPRANOLOL\PROPRANOLOL HYDROCHLORIDE
     Indication: MIGRAINE
     Dosage: 40MG TABLET BY MOUTH TWICE A DAY
     Route: 048
  2. ZYRTEC [Concomitant]
     Active Substance: CETIRIZINE HYDROCHLORIDE
     Indication: HYPERSENSITIVITY
     Dosage: 10MG TABLET BY MOUTH ONCE A DAY
     Route: 048
  3. LYRICA [Suspect]
     Active Substance: PREGABALIN
     Indication: FIBROMYALGIA
     Dosage: 225MG CAPSULE BY MOUTH TWICE A DAY
     Route: 048
     Dates: start: 2014, end: 20160805
  4. LYRICA [Suspect]
     Active Substance: PREGABALIN
     Dosage: 125 MG, 2X/DAY
     Route: 048
     Dates: end: 201607
  5. SUDAFED [Concomitant]
     Active Substance: PSEUDOEPHEDRINE HYDROCHLORIDE
     Indication: HYPERSENSITIVITY
     Dosage: 60MG TABLET BY MOUTH TWO TO THREE TIMES A DAY
     Route: 048
  6. TIZANIDINE. [Concomitant]
     Active Substance: TIZANIDINE
     Indication: MUSCLE DISORDER
     Dosage: 4MG TABLET BY MOUTH TWO OR THREE TIMES DAILY
     Route: 048
  7. PERSOL [Concomitant]
     Indication: CONTRACEPTION
     Dosage: ONE TABLET BY MOUTH A DAY CONTINUOUSLY
     Route: 048
     Dates: start: 2013
  8. FLONASE [Concomitant]
     Active Substance: FLUTICASONE PROPIONATE
     Indication: HYPERSENSITIVITY
     Dosage: TWO SPRAYS IN EACH NOSTRIL ONCE A DAY
     Route: 045

REACTIONS (2)
  - Colitis [Recovering/Resolving]
  - Liver function test increased [Not Recovered/Not Resolved]

NARRATIVE: CASE EVENT DATE: 20160810
